FAERS Safety Report 18416650 (Version 4)
Quarter: 2022Q1

REPORT INFORMATION
  Report Type: Spontaneous
  Country: US (occurrence: US)
  Receive Date: 20201022
  Receipt Date: 20220331
  Transmission Date: 20220423
  Serious: No
  Sender: FDA-Public Use
  Company Number: US-SA-2016SA025436

PATIENT
  Age: 54 Year
  Sex: Female

DRUGS (2)
  1. ENOXAPARIN SODIUM [Suspect]
     Active Substance: ENOXAPARIN SODIUM
     Indication: Thrombosis
     Dosage: 0.7 MG
     Dates: start: 201509
  2. ENOXAPARIN SODIUM [Suspect]
     Active Substance: ENOXAPARIN SODIUM
     Dosage: UNK
     Route: 065

REACTIONS (5)
  - Injection site bruising [Unknown]
  - Injection site pain [Unknown]
  - Needle issue [Unknown]
  - Product use complaint [Unknown]
  - Product packaging issue [Unknown]
